FAERS Safety Report 20362943 (Version 1)
Quarter: 2022Q1

REPORT INFORMATION
  Report Type: Spontaneous
  Country: US (occurrence: US)
  Receive Date: 20220121
  Receipt Date: 20220121
  Transmission Date: 20220424
  Serious: No
  Sender: FDA-Public Use
  Company Number: US-PFIZER INC-202101456962

PATIENT
  Age: 56 Year
  Sex: Female
  Weight: 114 kg

DRUGS (2)
  1. IBRANCE [Suspect]
     Active Substance: PALBOCICLIB
     Indication: Breast cancer female
     Dosage: 125 MG, CYCLIC (1DAILY FOR 21DAYS)
     Route: 048
     Dates: start: 201711
  2. SYNVISC [Concomitant]
     Active Substance: HYLAN G-F 20
     Dosage: UNK

REACTIONS (2)
  - Pneumonitis [Unknown]
  - Feeling abnormal [Unknown]
